FAERS Safety Report 6613698-4 (Version None)
Quarter: 2010Q1

REPORT INFORMATION
  Report Type: 
  Country: None (occurrence: None)
  Receive Date: 20100226
  Receipt Date: 20100218
  Transmission Date: 20100710
  Serious: Yes (Hospitalization)
  Sender: FDA-Public Use
  Company Number: 2010SP010504

PATIENT
  Sex: Female

DRUGS (1)
  1. TEMODAR [Suspect]
     Indication: BREAST CANCER METASTATIC
     Dates: start: 20090629, end: 20090708

REACTIONS (3)
  - METASTASES TO CENTRAL NERVOUS SYSTEM [None]
  - OVARIAN DISORDER [None]
  - VENA CAVA THROMBOSIS [None]
